FAERS Safety Report 19289389 (Version 3)
Quarter: 2022Q1

REPORT INFORMATION
  Report Type: Report from Study
  Country: AR (occurrence: AR)
  Receive Date: 20210521
  Receipt Date: 20220323
  Transmission Date: 20220424
  Serious: Yes (Hospitalization, Other)
  Sender: FDA-Public Use
  Company Number: AR-NOVARTISPH-NVSC2021AR070408

PATIENT
  Age: 2 Year
  Sex: Male

DRUGS (2)
  1. OMNITROPE [Suspect]
     Active Substance: SOMATROPIN
     Indication: Prader-Willi syndrome
     Dosage: 0.2 MG, QD (OMNITROPE 5 MG/1.5 ML)
     Route: 058
     Dates: start: 20191217
  2. OMNITROPE [Suspect]
     Active Substance: SOMATROPIN
     Dosage: 0.3 MG, QD
     Route: 058

REACTIONS (7)
  - Bronchospasm [Unknown]
  - Hypotonia [Unknown]
  - Seizure [Unknown]
  - Partial seizures [Unknown]
  - Muscle atrophy [Unknown]
  - Contusion [Unknown]
  - Haematoma [Unknown]

NARRATIVE: CASE EVENT DATE: 20220301
